FAERS Safety Report 6818742-7 (Version None)
Quarter: 2010Q2

REPORT INFORMATION
  Report Type: 
  Country: None (occurrence: None)
  Receive Date: 20100630
  Receipt Date: 20100622
  Transmission Date: 20101027
  Serious: Yes (Life-Threatening)
  Sender: FDA-Public Use
  Company Number: 014364

PATIENT
  Age: 47 Year
  Sex: Male
  Weight: 86 kg

DRUGS (3)
  1. LACOSAMIDE (LACOSAMID) [Suspect]
     Indication: EPILEPSY
     Dosage: 400 MG QD
     Dates: start: 20090101
  2. LAMOTRIGINE [Suspect]
     Indication: EPILEPSY
     Dosage: 100 MG QD
     Dates: start: 20090101
  3. BISOPROLOL [Concomitant]

REACTIONS (1)
  - ATRIAL FLUTTER [None]
